FAERS Safety Report 18237796 (Version 3)
Quarter: 2020Q3

REPORT INFORMATION
  Report Type: Report from Study
  Country: US (occurrence: US)
  Receive Date: 20200907
  Receipt Date: 20200910
  Transmission Date: 20201103
  Serious: Yes (Other)
  Sender: FDA-Public Use
  Company Number: NVSC2020US239684

PATIENT
  Sex: Female

DRUGS (1)
  1. GILENYA [Suspect]
     Active Substance: FINGOLIMOD HYDROCHLORIDE
     Indication: MULTIPLE SCLEROSIS
     Dosage: 0.5 MG (EVERY 48 HOURS)
     Route: 048
     Dates: start: 202005

REACTIONS (3)
  - Lymphocyte count abnormal [Unknown]
  - Immunodeficiency [Unknown]
  - Off label use [Unknown]
